FAERS Safety Report 13783694 (Version 1)
Quarter: 2017Q3

REPORT INFORMATION
  Report Type: Spontaneous
  Country: CN (occurrence: CN)
  Receive Date: 20170724
  Receipt Date: 20170724
  Transmission Date: 20171127
  Serious: Yes (Other)
  Sender: FDA-Public Use
  Company Number: CN-ALLERGAN-1730280US

PATIENT
  Age: 91 Year
  Sex: Male

DRUGS (1)
  1. MEMANTINE HCL - BP [Suspect]
     Active Substance: MEMANTINE
     Indication: COGNITIVE DISORDER
     Dosage: 20 MG, QD
     Route: 048

REACTIONS (2)
  - Epilepsy [Unknown]
  - Off label use [Unknown]
